FAERS Safety Report 4709547-1 (Version None)
Quarter: 2005Q3

REPORT INFORMATION
  Report Type: 
  Country: None (occurrence: None)
  Receive Date: 20050706
  Receipt Date: 20050623
  Transmission Date: 20060218
  Serious: Yes (Other)
  Sender: FDA-Public Use
  Company Number: 2005081299

PATIENT
  Age: 70 Year
  Sex: Male
  Weight: 65 kg

DRUGS (1)
  1. VIAGRA [Suspect]
     Indication: ILL-DEFINED DISORDER
     Dosage: (AS NECESSARY), ORAL
     Route: 048
     Dates: end: 20030721

REACTIONS (5)
  - AMAUROSIS FUGAX [None]
  - OPTIC ISCHAEMIC NEUROPATHY [None]
  - SCOTOMA [None]
  - VISUAL ACUITY REDUCED [None]
  - VISUAL FIELD DEFECT [None]
